FAERS Safety Report 25061751 (Version 3)
Quarter: 2025Q2

REPORT INFORMATION
  Report Type: Spontaneous
  Country: PL (occurrence: PL)
  Receive Date: 20250311
  Receipt Date: 20250411
  Transmission Date: 20250717
  Serious: Yes (Hospitalization)
  Sender: AUROBINDO
  Company Number: PL-CHEPLA-2025002207

PATIENT
  Age: 3 Year
  Sex: Female

DRUGS (3)
  1. AMOXICILLIN [Suspect]
     Active Substance: AMOXICILLIN
     Indication: Diphtheria
     Route: 065
  2. AMOXICILLIN [Suspect]
     Active Substance: AMOXICILLIN
     Indication: Pneumonia
  3. AMOXICILLIN [Suspect]
     Active Substance: AMOXICILLIN
     Indication: Scarlet fever

REACTIONS (3)
  - General physical health deterioration [Recovered/Resolved]
  - Drug ineffective [Recovered/Resolved]
  - Hospitalisation [Unknown]
